FAERS Safety Report 4385540-6 (Version None)
Quarter: 2004Q2

REPORT INFORMATION
  Report Type: 
  Country: None (occurrence: None)
  Receive Date: 20040622
  Receipt Date: 20040608
  Transmission Date: 20050107
  Serious: Yes (Hospitalization)
  Sender: FDA-Public Use
  Company Number: 2004-BP-03025BP

PATIENT
  Age: 75 Year
  Sex: Female

DRUGS (4)
  1. CATAPRES TTS (CLONIDINE HYDROHCLORIDE) [Suspect]
     Indication: HYPERTENSION
     Dosage: 0.3 MG (7.5 MG), TO
     Route: 061
     Dates: start: 20030101, end: 20040101
  2. CATAPRES TTS (CLONIDINE HYDROHCLORIDE) [Suspect]
     Indication: HYPERTENSION
     Dosage: 0.3 MG (7.5 MG), TO
     Route: 061
     Dates: start: 20040101, end: 20040101
  3. CATAPRES TTS (CLONIDINE HYDROHCLORIDE) [Suspect]
     Indication: HYPERTENSION
     Dosage: 0.3 MG (7.5 MG), TO
     Route: 061
     Dates: start: 20040301, end: 20040518
  4. RISPERDAL [Suspect]
     Dosage: 2 MG (NR), NR
     Dates: start: 20040301

REACTIONS (4)
  - BLOOD PRESSURE DECREASED [None]
  - BLOOD PRESSURE INCREASED [None]
  - DELUSIONAL DISORDER, PERSECUTORY TYPE [None]
  - DEPRESSIVE SYMPTOM [None]
